FAERS Safety Report 5444547-8 (Version None)
Quarter: 2007Q3

REPORT INFORMATION
  Report Type: 
  Country: None (occurrence: None)
  Receive Date: 20070906
  Receipt Date: 20070830
  Transmission Date: 20080115
  Serious: Yes (Hospitalization)
  Sender: FDA-Public Use
  Company Number: GB-AVENTIS-200717950GDDC

PATIENT
  Age: 12 Year
  Sex: Male

DRUGS (1)
  1. DESMOSPRAY                         /00361901/ [Suspect]
     Route: 045
     Dates: start: 19940727, end: 19940728

REACTIONS (5)
  - BRAIN OEDEMA [None]
  - CONVULSION [None]
  - FLUID OVERLOAD [None]
  - HYPONATRAEMIA [None]
  - WATER INTOXICATION [None]
